FAERS Safety Report 4849858-2 (Version None)
Quarter: 2005Q4

REPORT INFORMATION
  Report Type: 
  Country: None (occurrence: None)
  Receive Date: 20051114
  Receipt Date: 20050119
  Transmission Date: 20060501
  Serious: No
  Sender: FDA-Public Use
  Company Number: 050124-0000567

PATIENT
  Age: 78 Month
  Sex: Female
  Weight: 17.9 kg

DRUGS (8)
  1. PENTOBARBITAL SODIUM [Suspect]
     Indication: SEDATION
     Dosage: 3.3 MG/KG;X1;IVBOL
     Route: 040
  2. PENTOBARBITAL SODIUM [Suspect]
     Dosage: 3.6 MG/KG;QH/IVDRP
     Route: 041
  3. ONDANSETRON [Concomitant]
  4. CEFUROXIME [Concomitant]
  5. RANITIDINE [Concomitant]
  6. CEFAZOLIN [Concomitant]
  7. CLINDAMYCIN [Concomitant]
  8. GENTAMICIN [Concomitant]

REACTIONS (1)
  - HYPOTENSION [None]
